FAERS Safety Report 9902988 (Version 1)
Quarter: 2014Q1

REPORT INFORMATION
  Report Type: Report from Study
  Country: DE (occurrence: DE)
  Receive Date: 20140217
  Receipt Date: 20140217
  Transmission Date: 20141002
  Serious: No
  Sender: FDA-Public Use
  Company Number: PHHY2014DE019167

PATIENT
  Sex: Male

DRUGS (5)
  1. AMN107 [Suspect]
     Indication: CHRONIC MYELOID LEUKAEMIA
     Dosage: 600 MG, UNK
     Dates: start: 20121227
  2. RIOPAN [Concomitant]
     Dates: start: 20130419, end: 20130607
  3. DELIX [Concomitant]
     Dosage: 5 MG, UNK
     Dates: start: 20131004
  4. OMEPRAZOLE [Concomitant]
     Dosage: 20 MG, UNK
     Dates: start: 201312, end: 20140103
  5. OMEPRAZOLE [Concomitant]
     Dosage: 40 MG, UNK
     Dates: start: 20130103

REACTIONS (3)
  - Abdominal pain upper [Not Recovered/Not Resolved]
  - Abdominal distension [Not Recovered/Not Resolved]
  - Flatulence [Not Recovered/Not Resolved]
